FAERS Safety Report 7540161 (Version 2)
Quarter: 2012Q4

REPORT INFORMATION
  Report Type: Report from Study
  Country: DE (occurrence: DE)
  Receive Date: 20100813
  Receipt Date: 20121129
  Transmission Date: 20130627
  Serious: Yes (Hospitalization)
  Sender: FDA-Public Use
  Company Number: PHHO2010DE11918

PATIENT
  Age: 75 Year
  Sex: Female

DRUGS (3)
  1. RAD 666 [Suspect]
     Indication: RENAL TRANSPLANT
     Dosage: 1.5 mg, daily
     Route: 048
     Dates: start: 20100713, end: 20100802
  2. SIMULECT / CHI 621A / SDZ CHI 621 [Suspect]
     Indication: RENAL TRANSPLANT
     Dosage: 20 mg, daily
     Route: 042
     Dates: start: 20100510, end: 20100510
  3. SIMULECT / CHI 621A / SDZ CHI 621 [Suspect]
     Dosage: 20 mg, daily
     Route: 042
     Dates: start: 20100514, end: 20100514

REACTIONS (4)
  - Aphthous stomatitis [Recovered/Resolved with Sequelae]
  - Escherichia urinary tract infection [Recovered/Resolved with Sequelae]
  - Cytomegalovirus infection [Recovered/Resolved with Sequelae]
  - Leukopenia [Recovered/Resolved with Sequelae]
